FAERS Safety Report 6120623-1 (Version None)
Quarter: 2009Q1

REPORT INFORMATION
  Report Type: 
  Country: None (occurrence: None)
  Receive Date: 20090312
  Receipt Date: 20090312
  Transmission Date: 20090719
  Serious: Yes (Hospitalization)
  Sender: FDA-Public Use
  Company Number: None

PATIENT
  Age: 8 Year
  Sex: Male
  Weight: 26.3086 kg

DRUGS (2)
  1. ABILIFY [Suspect]
     Indication: ASPERGER'S DISORDER
     Dosage: 1 TABLET 2X PER DAY PO
     Route: 048
     Dates: start: 20081210, end: 20081214
  2. ABILIFY [Suspect]
     Indication: ATTENTION DEFICIT/HYPERACTIVITY DISORDER
     Dosage: 1 TABLET 2X PER DAY PO
     Route: 048
     Dates: start: 20081210, end: 20081214

REACTIONS (8)
  - AGITATION [None]
  - BACK PAIN [None]
  - DYSPNOEA [None]
  - HYPOKINESIA [None]
  - MUSCLE DISORDER [None]
  - MUSCLE SPASMS [None]
  - NECK PAIN [None]
  - PANIC REACTION [None]
